FAERS Safety Report 25722827 (Version 1)
Quarter: 2025Q3

REPORT INFORMATION
  Report Type: Spontaneous
  Country: EU (occurrence: EU)
  Receive Date: 20250825
  Receipt Date: 20250825
  Transmission Date: 20251021
  Serious: Yes (Death, Life-Threatening, Other)
  Sender: SANDOZ
  Company Number: EU-PHARMATHEN-GPV2018PHT025100

PATIENT
  Age: 25 Year
  Sex: Male

DRUGS (24)
  1. ALPRAZOLAM [Suspect]
     Active Substance: ALPRAZOLAM
     Indication: Depression
     Route: 048
  2. ALPRAZOLAM [Suspect]
     Active Substance: ALPRAZOLAM
     Indication: Overdose
     Route: 065
  3. DICLOFENAC [Suspect]
     Active Substance: DICLOFENAC
     Indication: Product used for unknown indication
     Route: 065
  4. ALCOHOL [Suspect]
     Active Substance: ALCOHOL
     Indication: Product used for unknown indication
     Route: 065
  5. CITALOPRAM HYDROBROMIDE [Suspect]
     Active Substance: CITALOPRAM HYDROBROMIDE
     Indication: Depression
     Route: 065
  6. HERBALS\TETRAHYDROCANNABINOL UNSPECIFIED [Suspect]
     Active Substance: HERBALS\TETRAHYDROCANNABINOL UNSPECIFIED
     Indication: Product used for unknown indication
     Route: 065
  7. VALPROIC ACID [Suspect]
     Active Substance: VALPROIC ACID
     Indication: Depression
     Route: 065
  8. CITALOPRAM [Interacting]
     Active Substance: CITALOPRAM
     Indication: Depression
     Route: 065
  9. CITALOPRAM [Interacting]
     Active Substance: CITALOPRAM
     Indication: Overdose
  10. DESLORATADINE [Interacting]
     Active Substance: DESLORATADINE
     Indication: Depression
     Route: 065
  11. DESLORATADINE [Interacting]
     Active Substance: DESLORATADINE
     Indication: Overdose
  12. DESLORATADINE [Interacting]
     Active Substance: DESLORATADINE
     Indication: Product used for unknown indication
  13. FLUOXETINE [Interacting]
     Active Substance: FLUOXETINE HYDROCHLORIDE
     Indication: Depression
     Route: 065
  14. FLUOXETINE [Interacting]
     Active Substance: FLUOXETINE HYDROCHLORIDE
     Indication: Overdose
  15. FLURBIPROFEN [Interacting]
     Active Substance: FLURBIPROFEN
     Indication: Overdose
     Route: 065
  16. FLURBIPROFEN [Interacting]
     Active Substance: FLURBIPROFEN
     Indication: Product used for unknown indication
  17. MOCLOBEMIDE [Interacting]
     Active Substance: MOCLOBEMIDE
     Indication: Depression
     Route: 065
  18. MOCLOBEMIDE [Interacting]
     Active Substance: MOCLOBEMIDE
     Indication: Overdose
  19. PERINDOPRIL [Interacting]
     Active Substance: PERINDOPRIL
     Indication: Overdose
     Route: 065
  20. PROPRANOLOL [Interacting]
     Active Substance: PROPRANOLOL HYDROCHLORIDE
     Indication: Overdose
     Route: 065
  21. PROPRANOLOL [Interacting]
     Active Substance: PROPRANOLOL HYDROCHLORIDE
     Indication: Product used for unknown indication
  22. QUETIAPINE [Interacting]
     Active Substance: QUETIAPINE
     Indication: Depression
     Route: 048
  23. QUETIAPINE [Interacting]
     Active Substance: QUETIAPINE
     Indication: Overdose
  24. VALPROATE [Interacting]
     Active Substance: VALPROIC ACID
     Indication: Depression
     Route: 048

REACTIONS (17)
  - Arrhythmia [Fatal]
  - Electrocardiogram QT prolonged [Fatal]
  - Toxicity to various agents [Fatal]
  - Drug interaction [Fatal]
  - Intentional overdose [Fatal]
  - Sudden death [Fatal]
  - Ischaemic cerebral infarction [Fatal]
  - Hypertrophic cardiomyopathy [Fatal]
  - Contraindicated product administered [Fatal]
  - Bronchiectasis [Unknown]
  - Pulmonary oedema [Unknown]
  - Secretion discharge [Unknown]
  - Arteriosclerosis [Unknown]
  - Lip haemorrhage [Unknown]
  - Foaming at mouth [Unknown]
  - Product use issue [Unknown]
  - Off label use [Unknown]
